FAERS Safety Report 8776348 (Version 2)
Quarter: 2012Q4

REPORT INFORMATION
  Report Type: 
  Country: GB (occurrence: GB)
  Receive Date: 20120910
  Receipt Date: 20120910
  Transmission Date: 20130627
  Serious: Yes (Other)
  Sender: FDA-Public Use
  Company Number: PHFR2012GB004152

PATIENT
  Age: 78 Year
  Sex: Male

DRUGS (1)
  1. CLOZARIL [Suspect]
     Route: 048
     Dates: start: 20110725

REACTIONS (2)
  - Parkinson^s disease [Unknown]
  - Eosinophil count increased [Recovered/Resolved]
